FAERS Safety Report 8388087-5 (Version None)
Quarter: 2012Q2

REPORT INFORMATION
  Report Type: 
  Country: None (occurrence: None)
  Receive Date: 20120525
  Receipt Date: 20120418
  Transmission Date: 20120825
  Serious: Yes (Other)
  Sender: FDA-Public Use
  Company Number: CN-JNJFOC-20120514600

PATIENT
  Sex: Male
  Weight: 46 kg

DRUGS (2)
  1. NIZORAL [Suspect]
     Indication: INFECTION
     Route: 048
     Dates: start: 20110502, end: 20110502
  2. NIZORAL [Suspect]
     Indication: TINEA PEDIS
     Route: 048
     Dates: start: 20110502, end: 20110502

REACTIONS (9)
  - RED BLOOD CELL COUNT INCREASED [None]
  - URTICARIA [None]
  - NEUTROPHIL COUNT INCREASED [None]
  - ASTHENIA [None]
  - PYREXIA [None]
  - RASH GENERALISED [None]
  - FLUSHING [None]
  - PRURITUS GENERALISED [None]
  - CHILLS [None]
